FAERS Safety Report 12059746 (Version 1)
Quarter: 2016Q1

REPORT INFORMATION
  Report Type: Spontaneous
  Country: GB (occurrence: GB)
  Receive Date: 20160210
  Receipt Date: 20160210
  Transmission Date: 20160526
  Serious: Yes (Other)
  Sender: FDA-Public Use
  Company Number: GB-AMGEN-GBRSP2016013982

PATIENT
  Age: 50 Year
  Sex: Female
  Weight: 66.22 kg

DRUGS (2)
  1. XGEVA [Suspect]
     Active Substance: DENOSUMAB
     Indication: METASTASES TO BONE
     Dosage: 120 MG, Q4WK
     Route: 051
     Dates: start: 20150628, end: 20151020
  2. LETROZOLE. [Concomitant]
     Active Substance: LETROZOLE
     Dosage: UNK

REACTIONS (7)
  - Gait disturbance [Unknown]
  - Spinal pain [Unknown]
  - Slow response to stimuli [Unknown]
  - Cognitive disorder [Unknown]
  - Fatigue [Recovering/Resolving]
  - Head discomfort [Unknown]
  - Discomfort [Unknown]

NARRATIVE: CASE EVENT DATE: 20150925
